FAERS Safety Report 6248092-1 (Version None)
Quarter: 2009Q2

REPORT INFORMATION
  Report Type: 
  Country: None (occurrence: None)
  Receive Date: 20090624
  Receipt Date: 20090624
  Transmission Date: 20091009
  Serious: Yes (Disabling)
  Sender: FDA-Public Use
  Company Number: None

PATIENT
  Age: 71 Year
  Sex: Female
  Weight: 90.7194 kg

DRUGS (2)
  1. ENABLEX [Suspect]
     Indication: BLADDER PROLAPSE
     Dosage: ONE TABLET DAILY
     Dates: start: 20070501
  2. VESICARE [Suspect]
     Indication: BLADDER PROLAPSE
     Dosage: 5MG ONCE DAILY
     Dates: start: 20070601

REACTIONS (6)
  - ABDOMINAL PAIN UPPER [None]
  - BALANCE DISORDER [None]
  - FALL [None]
  - MUSCLE TIGHTNESS [None]
  - MYALGIA [None]
  - VISUAL IMPAIRMENT [None]
